FAERS Safety Report 9472581 (Version 1)
Quarter: 2013Q3

REPORT INFORMATION
  Report Type: Report from Study
  Country: MX (occurrence: MX)
  Receive Date: 20130823
  Receipt Date: 20130823
  Transmission Date: 20140515
  Serious: Yes (Death)
  Sender: FDA-Public Use
  Company Number: PHHY2013MX091242

PATIENT
  Age: 79 Year
  Sex: Male

DRUGS (2)
  1. EXFORGE HCT [Suspect]
     Indication: CARDIAC DISORDER
     Dosage: 1 DF, (VALS 320 MG/AMLO 10 MG/ HCT 25 MG) DAILY
     Route: 048
  2. EXFORGE HCT [Suspect]
     Indication: BLOOD PRESSURE ABNORMAL

REACTIONS (1)
  - Myocardial infarction [Fatal]
